FAERS Safety Report 22050930 (Version 1)
Quarter: 2023Q1

REPORT INFORMATION
  Report Type: Spontaneous
  Country: CA (occurrence: CA)
  Receive Date: 20230301
  Receipt Date: 20230301
  Transmission Date: 20230418
  Serious: Yes (Other)
  Sender: FDA-Public Use
  Company Number: CA-AstraZeneca-2019SF55812

PATIENT
  Age: 40 Year
  Sex: Female

DRUGS (18)
  1. ALVESCO [Suspect]
     Active Substance: CICLESONIDE
     Indication: Product used for unknown indication
  2. ACLIDINIUM BROMIDE [Suspect]
     Active Substance: ACLIDINIUM BROMIDE
     Indication: Product used for unknown indication
  3. PULMICORT TURBUHALER [Suspect]
     Active Substance: BUDESONIDE
     Indication: Product used for unknown indication
  4. GLYCOPYRROLATE [Suspect]
     Active Substance: GLYCOPYRROLATE
     Indication: Product used for unknown indication
  5. FORMOTEROL FUMARATE [Suspect]
     Active Substance: FORMOTEROL FUMARATE
     Indication: Product used for unknown indication
  6. IPRATROPIUM BROMIDE [Suspect]
     Active Substance: IPRATROPIUM BROMIDE
     Indication: Product used for unknown indication
  7. INDACATEROL MALEATE [Suspect]
     Active Substance: INDACATEROL MALEATE
     Indication: Product used for unknown indication
  8. NOVORAPID [Suspect]
     Active Substance: INSULIN ASPART
     Indication: Product used for unknown indication
     Dosage: PREFILLED MULTIDOSE DISPOSABLE INSULIN DELIVERY DEVICE CONTAINING A 3ML CARTRIDGE
  9. ALBUTEROL [Suspect]
     Active Substance: ALBUTEROL
     Indication: Product used for unknown indication
  10. ALBUTEROL SULFATE [Suspect]
     Active Substance: ALBUTEROL SULFATE
     Indication: Product used for unknown indication
     Dosage: 4.0DF UNKNOWN
  11. SINGULAIR [Suspect]
     Active Substance: MONTELUKAST SODIUM
     Indication: Product used for unknown indication
  12. SPIRIVA [Suspect]
     Active Substance: TIOTROPIUM BROMIDE MONOHYDRATE
     Indication: Product used for unknown indication
  13. TRAZODONE [Suspect]
     Active Substance: TRAZODONE HYDROCHLORIDE
     Indication: Product used for unknown indication
  14. EZETIMIBE [Concomitant]
     Active Substance: EZETIMIBE
     Indication: Product used for unknown indication
  15. CETIRIZINE HYDROCHLORIDE [Concomitant]
     Active Substance: CETIRIZINE HYDROCHLORIDE
  16. ROSUVASTATIN CALCIUM [Concomitant]
     Active Substance: ROSUVASTATIN CALCIUM
  17. PANTOPRAZOLE MAGNESIUM [Concomitant]
     Active Substance: PANTOPRAZOLE MAGNESIUM
     Dosage: ENTERIC COATED TABLET
  18. ASPIRIN [Concomitant]
     Active Substance: ASPIRIN

REACTIONS (26)
  - Cough [Recovering/Resolving]
  - Depression [Recovering/Resolving]
  - Eczema [Recovering/Resolving]
  - Pruritus [Recovering/Resolving]
  - Abscess [Recovering/Resolving]
  - Asthma [Recovering/Resolving]
  - Blood test abnormal [Recovering/Resolving]
  - Condition aggravated [Recovering/Resolving]
  - Coronary artery disease [Recovering/Resolving]
  - Disability [Recovering/Resolving]
  - Dyslipidaemia [Recovering/Resolving]
  - Dyspnoea [Recovering/Resolving]
  - Gastrooesophageal reflux disease [Recovering/Resolving]
  - Hyper IgE syndrome [Recovering/Resolving]
  - Hypertension [Recovering/Resolving]
  - Myocardial infarction [Recovering/Resolving]
  - Obstructive airways disorder [Recovering/Resolving]
  - Pneumonia [Recovering/Resolving]
  - Polycystic ovaries [Recovering/Resolving]
  - Restless legs syndrome [Recovering/Resolving]
  - Restrictive pulmonary disease [Recovering/Resolving]
  - Skin lesion [Recovering/Resolving]
  - Sleep apnoea syndrome [Recovering/Resolving]
  - Type 2 diabetes mellitus [Recovering/Resolving]
  - Weight decreased [Recovering/Resolving]
  - Drug ineffective [Recovering/Resolving]
